FAERS Safety Report 8047289-8 (Version None)
Quarter: 2012Q1

REPORT INFORMATION
  Report Type: 
  Country: None (occurrence: None)
  Receive Date: 20120116
  Receipt Date: 20120111
  Transmission Date: 20120608
  Serious: Yes (Death, Hospitalization)
  Sender: FDA-Public Use
  Company Number: US-ELI_LILLY_AND_COMPANY-US201201003437

PATIENT
  Sex: Female

DRUGS (3)
  1. ALOXI [Concomitant]
  2. GEMZAR [Suspect]
     Indication: LUNG NEOPLASM MALIGNANT
     Dosage: 1880 UNK, UNK
     Dates: end: 20111116
  3. DEXAMETHASONE [Concomitant]

REACTIONS (2)
  - PAIN [None]
  - NEOPLASM PROGRESSION [None]
